FAERS Safety Report 5766196-4 (Version None)
Quarter: 2008Q2

REPORT INFORMATION
  Report Type: 
  Country: None (occurrence: None)
  Receive Date: 20080609
  Receipt Date: 20080508
  Transmission Date: 20081010
  Serious: No
  Sender: FDA-Public Use
  Company Number: 002#2#2008-00394

PATIENT
  Age: 59 Year
  Sex: Male
  Weight: 81.6475 kg

DRUGS (10)
  1. NEUPRO [Suspect]
     Indication: PARKINSON'S DISEASE
     Dosage: SEE IMAGE
     Route: 062
     Dates: start: 20071101, end: 20080321
  2. NEUPRO [Suspect]
     Indication: PARKINSON'S DISEASE
     Dosage: SEE IMAGE
     Route: 062
     Dates: start: 20071001
  3. CARBIDOPA/LEVODOPA SR [Concomitant]
  4. CARBIDOPA AND LEVODOPA [Concomitant]
  5. EFFEXOR [Concomitant]
  6. MIRAPEX [Concomitant]
  7. TRAZODONE HCL [Concomitant]
  8. DOCUSATE SODIUM [Concomitant]
  9. FLOMAX [Concomitant]
  10. CENTURA [Concomitant]

REACTIONS (4)
  - DRUG INEFFECTIVE [None]
  - FALL [None]
  - MEDICATION ERROR [None]
  - SKIN LACERATION [None]
